FAERS Safety Report 16455991 (Version 1)
Quarter: 2019Q2

REPORT INFORMATION
  Report Type: Spontaneous
  Country: DK (occurrence: DK)
  Receive Date: 20190620
  Receipt Date: 20190620
  Transmission Date: 20190711
  Serious: Yes (Hospitalization)
  Sender: FDA-Public Use
  Company Number: DK-ACCORD-134111

PATIENT
  Age: 60 Year
  Sex: Male

DRUGS (4)
  1. METOPROLOL TARTRATE. [Concomitant]
     Active Substance: METOPROLOL TARTRATE
     Indication: BLOOD PRESSURE INCREASED
     Dosage: STYRKE: 50MG
     Route: 048
     Dates: start: 20150604
  2. METHOTREXATE. [Suspect]
     Active Substance: METHOTREXATE
     Indication: RHEUMATOID ARTHRITIS
     Dosage: STRENGTH: 2.5MG
     Route: 048
     Dates: start: 2016, end: 201905
  3. ALLOPURINOL DAK [Concomitant]
     Active Substance: ALLOPURINOL
     Indication: GOUT
     Dosage: STYRKE: 100MG
     Route: 048
     Dates: start: 20141022
  4. AMILCO [Concomitant]
     Active Substance: AMILORIDE HYDROCHLORIDE\HYDROCHLOROTHIAZIDE
     Indication: POLYURIA
     Dosage: STYRKE: 50 + 5MG
     Route: 048
     Dates: start: 20101207

REACTIONS (4)
  - Fatigue [Not Recovered/Not Resolved]
  - Hepatic enzyme abnormal [Not Recovered/Not Resolved]
  - Gait disturbance [Not Recovered/Not Resolved]
  - Muscular weakness [Not Recovered/Not Resolved]

NARRATIVE: CASE EVENT DATE: 2016
